FAERS Safety Report 5396274-3 (Version None)
Quarter: 2007Q3

REPORT INFORMATION
  Report Type: 
  Country: None (occurrence: None)
  Receive Date: 20070718
  Receipt Date: 20070410
  Transmission Date: 20080115
  Serious: Yes (Hospitalization, Other)
  Sender: FDA-Public Use
  Company Number: 2006141100

PATIENT
  Age: 66 Year
  Sex: Male
  Weight: 81.6 kg

DRUGS (2)
  1. CELEBREX [Suspect]
     Indication: ARTHRALGIA
     Dosage: MG (200 MG), ORAL
     Route: 048
     Dates: start: 19990225
  2. CELEBREX [Suspect]
     Indication: PAIN IN EXTREMITY
     Dosage: MG (200 MG), ORAL
     Route: 048
     Dates: start: 19990225

REACTIONS (1)
  - MYOCARDIAL INFARCTION [None]
